FAERS Safety Report 4446769-1 (Version None)
Quarter: 2004Q3

REPORT INFORMATION
  Report Type: 
  Country: None (occurrence: None)
  Receive Date: 20040910
  Receipt Date: 20040830
  Transmission Date: 20050211
  Serious: Yes (Hospitalization)
  Sender: FDA-Public Use
  Company Number: S04-USA-04404-01

PATIENT
  Age: 48 Year
  Sex: Female

DRUGS (2)
  1. LEXAPRO [Suspect]
     Indication: ANXIETY
     Dosage: 10 MG QD PO
     Route: 048
     Dates: start: 20040630, end: 20040717
  2. ORTHO EVRA [Concomitant]

REACTIONS (6)
  - BLOOD GLUCOSE DECREASED [None]
  - ELECTROENCEPHALOGRAM ABNORMAL [None]
  - FEELING ABNORMAL [None]
  - GRAND MAL CONVULSION [None]
  - HEADACHE [None]
  - VISION BLURRED [None]
